FAERS Safety Report 9702552 (Version 2)
Quarter: 2013Q4

REPORT INFORMATION
  Report Type: Spontaneous
  Country: IT (occurrence: IT)
  Receive Date: 20131121
  Receipt Date: 20131210
  Transmission Date: 20140711
  Serious: Yes (Hospitalization)
  Sender: FDA-Public Use
  Company Number: IT-TAKEDA-2013TUS002399

PATIENT
  Sex: 0

DRUGS (1)
  1. ADENURIC [Suspect]
     Indication: HYPERURICAEMIA
     Dosage: 80 MG, QD
     Route: 048
     Dates: start: 20130928, end: 20131025

REACTIONS (3)
  - Febrile neutropenia [Recovering/Resolving]
  - Hyperpyrexia [Recovering/Resolving]
  - Pancytopenia [Recovering/Resolving]
